FAERS Safety Report 6039880-5 (Version None)
Quarter: 2009Q1

REPORT INFORMATION
  Report Type: 
  Country: None (occurrence: None)
  Receive Date: 20090116
  Receipt Date: 20090112
  Transmission Date: 20090719
  Serious: Yes (Hospitalization)
  Sender: FDA-Public Use
  Company Number: US-BIOGENIDEC-2008BI030176

PATIENT
  Age: 37 Year
  Sex: Male

DRUGS (2)
  1. AVONEX [Suspect]
     Indication: MULTIPLE SCLEROSIS
     Route: 030
     Dates: start: 20050101, end: 20070101
  2. AVONEX [Suspect]
     Route: 030
     Dates: start: 20081104

REACTIONS (6)
  - ADVERSE DRUG REACTION [None]
  - AMNESIA [None]
  - FAECAL INCONTINENCE [None]
  - HYPOTONIA [None]
  - SYNCOPE [None]
  - URINARY INCONTINENCE [None]
